FAERS Safety Report 7620453-5 (Version None)
Quarter: 2011Q3

REPORT INFORMATION
  Report Type: 
  Country: None (occurrence: None)
  Receive Date: 20110719
  Receipt Date: 20110711
  Transmission Date: 20111222
  Serious: Yes (Hospitalization)
  Sender: FDA-Public Use
  Company Number: US-PURDUE-USA-2011-0071645

PATIENT
  Age: 68 Year
  Sex: Male
  Weight: 71.202 kg

DRUGS (22)
  1. PERCOCET [Suspect]
     Indication: PRODUCT USED FOR UNKNOWN INDICATION
     Dosage: 2 TABLET, Q3H
     Route: 048
     Dates: start: 20110418, end: 20110420
  2. NAPROXEN [Suspect]
     Indication: RHEUMATOID ARTHRITIS
  3. NORVASC [Concomitant]
     Indication: PRODUCT USED FOR UNKNOWN INDICATION
     Dosage: UNK
     Dates: start: 20050806
  4. RESTORIL                           /00393701/ [Concomitant]
     Indication: PRODUCT USED FOR UNKNOWN INDICATION
     Dosage: UNK
     Dates: start: 20050806
  5. NITROGLYCERIN [Concomitant]
     Indication: PRODUCT USED FOR UNKNOWN INDICATION
     Dosage: UNK
     Dates: start: 20050806
  6. VICODIN [Suspect]
     Indication: PRODUCT USED FOR UNKNOWN INDICATION
     Dosage: 2 TABLET, Q3H
     Dates: start: 20110418, end: 20110420
  7. PLAVIX [Concomitant]
     Indication: PRODUCT USED FOR UNKNOWN INDICATION
     Dosage: UNK
     Dates: start: 20050806
  8. ALTACE [Concomitant]
     Indication: PRODUCT USED FOR UNKNOWN INDICATION
     Dosage: UNK
     Dates: start: 20090625
  9. OXYCONTIN [Suspect]
     Indication: PRODUCT USED FOR UNKNOWN INDICATION
     Dosage: 5 MG, Q3H
     Route: 048
     Dates: start: 20110418, end: 20110420
  10. IBUPROFEN [Suspect]
     Indication: RHEUMATOID ARTHRITIS
  11. LIPITOR [Concomitant]
     Indication: PRODUCT USED FOR UNKNOWN INDICATION
     Dosage: UNK
     Dates: start: 20050806
  12. INSPRA [Concomitant]
     Indication: PRODUCT USED FOR UNKNOWN INDICATION
     Dosage: UNK
     Dates: start: 20050806
  13. CELECOXIB [Suspect]
     Indication: OSTEOARTHRITIS
     Dosage: UNK
     Dates: start: 20081030
  14. CELECOXIB [Suspect]
     Indication: RHEUMATOID ARTHRITIS
  15. ZOLOFT [Concomitant]
     Dosage: UNK
     Dates: start: 20050806
  16. NAPROXEN [Suspect]
     Indication: OSTEOARTHRITIS
     Dosage: UNK
     Dates: start: 20081030
  17. PLACEBO [Suspect]
     Indication: RHEUMATOID ARTHRITIS
  18. IBUPROFEN [Suspect]
     Indication: OSTEOARTHRITIS
     Dosage: UNK
     Dates: start: 20081030
  19. PLACEBO [Suspect]
     Indication: OSTEOARTHRITIS
     Dosage: UNK
     Dates: start: 20081030
  20. LOPRESSOR [Concomitant]
     Indication: PRODUCT USED FOR UNKNOWN INDICATION
     Dosage: UNK
     Dates: start: 20090625
  21. NEXIUM [Concomitant]
     Indication: PRODUCT USED FOR UNKNOWN INDICATION
     Dosage: UNK
     Dates: start: 20081030
  22. LOVENOX [Concomitant]
     Indication: PRODUCT USED FOR UNKNOWN INDICATION
     Dosage: UNK
     Dates: start: 20110419, end: 20110429

REACTIONS (2)
  - OSTEOARTHRITIS [None]
  - DELIRIUM [None]
